FAERS Safety Report 4613255-5 (Version None)
Quarter: 2005Q1

REPORT INFORMATION
  Report Type: 
  Country: None (occurrence: None)
  Receive Date: 20050315
  Receipt Date: 20050301
  Transmission Date: 20050727
  Serious: Yes (Life-Threatening, Hospitalization)
  Sender: FDA-Public Use
  Company Number: US_0412108899

PATIENT
  Age: 76 Year
  Sex: Male

DRUGS (7)
  1. CEFACLOR [Suspect]
     Indication: UPPER RESPIRATORY TRACT INFLAMMATION
     Dosage: 750 MG
     Dates: start: 20041115, end: 20041119
  2. CEFCAPENE PIVOXIL HYDROCHLORIDE [Concomitant]
  3. LOXONIN (LOXOPROFEN SODIUM) [Concomitant]
  4. PONTAL (MEFENAMIC ACID) [Concomitant]
  5. INDACIN (INDOMETACIN) [Concomitant]
  6. ROHYPNOL (FLUNITRAZEPAM EG) [Concomitant]
  7. INSUMIN (FLURAZEPAM) [Concomitant]

REACTIONS (15)
  - ASPIRATION [None]
  - BLISTER [None]
  - COUGH [None]
  - DERMATITIS EXFOLIATIVE [None]
  - DISEASE PROGRESSION [None]
  - DRUG INEFFECTIVE [None]
  - FALL [None]
  - HYPOXIA [None]
  - ISCHAEMIA [None]
  - NEUROLEPTIC MALIGNANT SYNDROME [None]
  - PNEUMONIA ASPIRATION [None]
  - PYREXIA [None]
  - RENAL FAILURE ACUTE [None]
  - RHABDOMYOLYSIS [None]
  - SUPRANUCLEAR PALSY [None]
